FAERS Safety Report 25064128 (Version 1)
Quarter: 2025Q1

REPORT INFORMATION
  Report Type: Spontaneous
  Country: JP (occurrence: JP)
  Receive Date: 20250311
  Receipt Date: 20250311
  Transmission Date: 20250409
  Serious: Yes (Hospitalization)
  Sender: BAYER HEALTHCARE PHARMACEUTICALS INC.
  Company Number: JP-BAYER-2025A014130

PATIENT
  Age: 53 Year
  Sex: Male

DRUGS (1)
  1. KERENDIA [Suspect]
     Active Substance: FINERENONE
     Indication: Diabetic nephropathy
     Dosage: DAILY DOSE 20 MG
     Route: 048
     Dates: start: 20240216, end: 20240805

REACTIONS (4)
  - Hyperkalaemia [Recovered/Resolved]
  - Prerenal failure [Recovering/Resolving]
  - Malaise [None]
  - Hypoaesthesia [None]

NARRATIVE: CASE EVENT DATE: 20240805
